FAERS Safety Report 14107304 (Version 1)
Quarter: 2017Q4

REPORT INFORMATION
  Report Type: Spontaneous
  Country: GB (occurrence: GB)
  Receive Date: 20171019
  Receipt Date: 20171019
  Transmission Date: 20180321
  Serious: Yes (Other)
  Sender: FDA-Public Use
  Company Number: GB-ASCEND THERAPEUTICS-2030697

PATIENT
  Age: 38 Year
  Sex: Female

DRUGS (8)
  1. ETOPOSIDE. [Concomitant]
     Active Substance: ETOPOSIDE
     Route: 065
  2. TINZAPARIN (TINZAPARIN) [Concomitant]
     Route: 065
  3. FILGRASTIM PEGYLATED (PEGFILGRASTIM) [Concomitant]
     Route: 065
  4. OXYCODONE (OXYCODONE) [Concomitant]
     Active Substance: OXYCODONE
     Route: 065
  5. PARACETAMOL (PARACETAMOL) [Concomitant]
     Active Substance: ACETAMINOPHEN
     Route: 065
  6. CISPLATINE (CISPLATIN) [Concomitant]
     Route: 065
  7. ESTROGEL [Suspect]
     Active Substance: ESTRADIOL
     Indication: HORMONE REPLACEMENT THERAPY
     Route: 061
     Dates: start: 20171003
  8. BLEOMYCIN [Concomitant]
     Active Substance: BLEOMYCIN SULFATE
     Route: 065

REACTIONS (1)
  - Hypoaesthesia [Unknown]

NARRATIVE: CASE EVENT DATE: 20171003
